FAERS Safety Report 9714283 (Version 3)
Quarter: 2015Q3

REPORT INFORMATION
  Report Type: Spontaneous
  Country: US (occurrence: US)
  Receive Date: 20131126
  Receipt Date: 20150803
  Transmission Date: 20151125
  Serious: No
  Sender: FDA-Public Use
  Company Number: US-GILEAD-2008-0018801

PATIENT
  Age: 82 Year
  Sex: Female
  Weight: 81.65 kg

DRUGS (10)
  1. MULTIVITAMIN [Concomitant]
     Active Substance: VITAMINS
  2. COUMADIN [Concomitant]
     Active Substance: WARFARIN SODIUM
  3. GLUCOSAMINE-CHONDR [Concomitant]
  4. CALCIUM +D [Concomitant]
     Active Substance: CALCIUM\VITAMIN D
  5. TOPROL XL [Concomitant]
     Active Substance: METOPROLOL SUCCINATE
  6. LETAIRIS [Suspect]
     Active Substance: AMBRISENTAN
     Indication: PULMONARY ARTERIAL HYPERTENSION
     Route: 048
     Dates: start: 20080923, end: 20081104
  7. ALDACTONE [Concomitant]
     Active Substance: SPIRONOLACTONE
  8. LANOXIN [Concomitant]
     Active Substance: DIGOXIN
  9. SYNTHROID [Concomitant]
     Active Substance: LEVOTHYROXINE SODIUM
  10. LASIX [Concomitant]
     Active Substance: FUROSEMIDE

REACTIONS (4)
  - Peripheral swelling [Recovered/Resolved]
  - Weight increased [Recovered/Resolved]
  - Generalised oedema [Recovered/Resolved]
  - Dyspnoea [Recovered/Resolved]

NARRATIVE: CASE EVENT DATE: 20081024
